FAERS Safety Report 4612623-5 (Version None)
Quarter: 2005Q1

REPORT INFORMATION
  Report Type: 
  Country: None (occurrence: None)
  Receive Date: 20050316
  Receipt Date: 20050316
  Transmission Date: 20050727
  Serious: Yes (Life-Threatening)
  Sender: FDA-Public Use
  Company Number: None

PATIENT
  Age: 62 Year
  Sex: Male
  Weight: 78.4723 kg

DRUGS (2)
  1. PLAVIX [Suspect]
     Indication: ANTICOAGULANT THERAPY
     Dosage: 75MG ONCE/DAY ORAL
     Route: 048
     Dates: start: 20020620, end: 20050315
  2. PLAVIX [Suspect]
     Indication: ARTERIAL OCCLUSIVE DISEASE
     Dosage: 75MG ONCE/DAY ORAL
     Route: 048
     Dates: start: 20020620, end: 20050315

REACTIONS (1)
  - DRUG INEFFECTIVE [None]
